FAERS Safety Report 23948465 (Version 1)
Quarter: 2024Q2

REPORT INFORMATION
  Report Type: Spontaneous
  Country: FR (occurrence: FR)
  Receive Date: 20240607
  Receipt Date: 20240607
  Transmission Date: 20240716
  Serious: Yes (Death, Life-Threatening, Congenital Anomaly, Other)
  Sender: FDA-Public Use
  Company Number: FR-CELLTRION INC.-2024FR013216

PATIENT

DRUGS (5)
  1. TRASTUZUMAB [Suspect]
     Active Substance: TRASTUZUMAB
     Indication: Invasive ductal breast carcinoma
     Dosage: 21 DAY (GESTATION PERIOD AT TIME OF EXPOSURE: 2 {TRIMESTER})
     Route: 064
     Dates: start: 20220302, end: 20220601
  2. CYCLOPHOSPHAMIDE [Suspect]
     Active Substance: CYCLOPHOSPHAMIDE
     Indication: Invasive ductal breast carcinoma
     Dosage: EVERY 3 WEEK (GESTATION PERIOD AT TIME OF EXPOSURE: 1 {TRIMESTER})
     Route: 064
     Dates: start: 20211208, end: 20220119
  3. PACLITAXEL [Concomitant]
     Active Substance: PACLITAXEL
     Indication: Invasive ductal breast carcinoma
     Dosage: EVERY 1 WEEK (GESTATION PERIOD AT TIME OF EXPOSURE: 2 {TRIMESTER})
     Route: 064
     Dates: start: 20220302, end: 20220601
  4. EPIRUBICIN [Concomitant]
     Active Substance: EPIRUBICIN
     Indication: Invasive ductal breast carcinoma
     Dosage: EVERY 3 WEEK (GESTATION PERIOD AT TIME OF EXPOSURE: 1 {TRIMESTER})
     Route: 064
     Dates: start: 20211218, end: 20220119
  5. IBUPROFEN [Concomitant]
     Active Substance: IBUPROFEN
     Indication: Pain
     Route: 064

REACTIONS (6)
  - Abortion induced [Fatal]
  - Oligohydramnios [Not Recovered/Not Resolved]
  - Cleft palate [Not Recovered/Not Resolved]
  - Pulmonary hypoplasia [Not Recovered/Not Resolved]
  - Renal hypoplasia [Not Recovered/Not Resolved]
  - Foetal exposure during pregnancy [Unknown]

NARRATIVE: CASE EVENT DATE: 20220608
